FAERS Safety Report 9921546 (Version 6)
Quarter: 2014Q2

REPORT INFORMATION
  Report Type: Spontaneous
  Country: US (occurrence: US)
  Receive Date: 20140225
  Receipt Date: 20140630
  Transmission Date: 20141212
  Serious: No
  Sender: FDA-Public Use
  Company Number: US-PFIZER INC-2014050780

PATIENT
  Age: 57 Year
  Sex: Male

DRUGS (8)
  1. SUTENT [Suspect]
     Dosage: 50 MG, CYCLIC (50 MG DOSE IN THE AM)
  2. LIPITOR [Concomitant]
     Dosage: UNK
  3. LOPID [Concomitant]
     Dosage: UNK
  4. LISINOPRIL [Concomitant]
     Dosage: UNK
  5. ZOLOFT [Concomitant]
     Dosage: UNK
  6. INSULIN [Concomitant]
     Indication: BLOOD GLUCOSE INCREASED
     Dosage: UNK
  7. VIT B12 [Concomitant]
     Dosage: UNK MONTHLY
  8. OMEPRAZOLE [Concomitant]
     Indication: DYSPEPSIA
     Dosage: UNK

REACTIONS (21)
  - Fatigue [Not Recovered/Not Resolved]
  - Dysgeusia [Not Recovered/Not Resolved]
  - Decreased appetite [Not Recovered/Not Resolved]
  - Gingival pain [Unknown]
  - Myalgia [Unknown]
  - Insomnia [Unknown]
  - Nausea [Unknown]
  - Abdominal discomfort [Unknown]
  - Blood glucose increased [Unknown]
  - Mood altered [Unknown]
  - Feeling abnormal [Unknown]
  - Stomatitis [Not Recovered/Not Resolved]
  - Oral pain [Unknown]
  - Diarrhoea [Unknown]
  - Flatulence [Not Recovered/Not Resolved]
  - Dyspepsia [Recovered/Resolved]
  - Hepatic pain [Unknown]
  - Procedural pain [Unknown]
  - Musculoskeletal chest pain [Unknown]
  - Erythema [Unknown]
  - Hypoaesthesia [Unknown]
